FAERS Safety Report 12428149 (Version 1)
Quarter: 2016Q2

REPORT INFORMATION
  Report Type: Spontaneous
  Country: US (occurrence: US)
  Receive Date: 20160602
  Receipt Date: 20160602
  Transmission Date: 20160815
  Serious: No
  Sender: FDA-Public Use
  Company Number: US-TAKEDA-2016MPI004624

PATIENT
  Sex: Male
  Weight: 122.45 kg

DRUGS (1)
  1. NINLARO [Suspect]
     Active Substance: IXAZOMIB
     Indication: PLASMA CELL LEUKAEMIA
     Dosage: 4 MG, UNK
     Route: 048
     Dates: start: 20160203

REACTIONS (2)
  - Nausea [Unknown]
  - Off label use [Unknown]
